FAERS Safety Report 9937373 (Version 1)
Quarter: 2014Q1

REPORT INFORMATION
  Report Type: Spontaneous
  Country: DE (occurrence: DE)
  Receive Date: 20140303
  Receipt Date: 20140303
  Transmission Date: 20141002
  Serious: Yes (Other)
  Sender: FDA-Public Use
  Company Number: DE-ROCHE-1355212

PATIENT
  Age: 37 Year
  Sex: Female
  Weight: 60 kg

DRUGS (1)
  1. OMALIZUMAB [Suspect]
     Indication: URTICARIA CHRONIC
     Route: 058
     Dates: end: 200812

REACTIONS (2)
  - Urticaria chronic [Recovered/Resolved]
  - Maternal exposure during pregnancy [Unknown]
